FAERS Safety Report 14381473 (Version 3)
Quarter: 2018Q2

REPORT INFORMATION
  Report Type: Spontaneous
  Country: GB (occurrence: FR)
  Receive Date: 20180112
  Receipt Date: 20180405
  Transmission Date: 20180711
  Serious: Yes (Death, Life-Threatening, Other)
  Sender: FDA-Public Use
  Company Number: FR-FRESENIUS KABI-FK201800313

PATIENT
  Age: 25 Year
  Sex: Female
  Weight: 84 kg

DRUGS (18)
  1. SODIUM BICARBONATE (MANUFACTURER UNKNOWN) [Suspect]
     Active Substance: SODIUM BICARBONATE
     Indication: ADVERSE EVENT
     Route: 065
     Dates: start: 20170715
  2. SODIUM CHLORIDE (MANUFACTURER UNKNOWN) [Suspect]
     Active Substance: SODIUM CHLORIDE
     Indication: HAEMOFILTRATION
     Route: 065
  3. INSULIN [Suspect]
     Active Substance: INSULIN NOS
     Indication: ADVERSE EVENT
     Route: 065
     Dates: start: 20170715
  4. NOREPINEPHRINE. [Suspect]
     Active Substance: NOREPINEPHRINE
     Indication: ADVERSE EVENT
     Route: 065
     Dates: start: 20170715
  5. HEMOSOL BO [Suspect]
     Active Substance: CALCIUM CL\DEXTROSE\LACTIC ACID\MAGNESIUM CL\POTASSIUM CL\SODIUM BICAR\SODIUM CL
     Indication: HAEMOFILTRATION
     Route: 042
     Dates: start: 20170715, end: 20170715
  6. METHYLPREDNISOLONE. [Suspect]
     Active Substance: METHYLPREDNISOLONE
     Indication: PRODUCT USED FOR UNKNOWN INDICATION
     Route: 065
     Dates: start: 20170707
  7. NOREPINEPHRINE. [Suspect]
     Active Substance: NOREPINEPHRINE
     Indication: CARDIOVASCULAR DISORDER
  8. HEPARIN SODIUM. [Suspect]
     Active Substance: HEPARIN SODIUM
     Indication: PRODUCT USED FOR UNKNOWN INDICATION
     Route: 065
  9. GLUCOSE (MANUFACTURER UNKNOWN) [Suspect]
     Active Substance: DEXTROSE
     Indication: MEDICATION DILUTION
     Route: 065
     Dates: start: 20170715
  10. DOBUTAMINE [Suspect]
     Active Substance: DOBUTAMINE\DOBUTAMINE HYDROCHLORIDE
     Indication: ADVERSE EVENT
     Route: 065
  11. POTASSIUM CHLORIDE (MANUFACTURER UNKNOWN) [Suspect]
     Active Substance: POTASSIUM CHLORIDE
     Indication: TUMOUR LYSIS SYNDROME
     Route: 042
     Dates: start: 20170715, end: 20170715
  12. PIPERACILLIN/TAZOBACTAM (MANUFACTURER UNKNOWN) [Suspect]
     Active Substance: PIPERACILLIN SODIUM\TAZOBACTAM SODIUM
     Indication: PRODUCT USED FOR UNKNOWN INDICATION
     Route: 065
  13. AMIODARONE [Suspect]
     Active Substance: AMIODARONE
     Indication: ADVERSE EVENT
     Route: 065
     Dates: start: 20170715
  14. EPINEPHRINE. [Suspect]
     Active Substance: EPINEPHRINE
     Indication: ADVERSE EVENT
     Route: 065
     Dates: start: 20170715
  15. SODIUM HYDROGEN CARBONATE [Suspect]
     Active Substance: SODIUM BICARBONATE
     Indication: HAEMOFILTRATION
     Route: 065
  16. DOBUTAMINE [Suspect]
     Active Substance: DOBUTAMINE\DOBUTAMINE HYDROCHLORIDE
     Indication: CARDIOVASCULAR DISORDER
     Route: 065
     Dates: start: 201707, end: 201707
  17. RASBURICASE [Suspect]
     Active Substance: RASBURICASE
     Indication: PROPHYLAXIS
     Route: 065
     Dates: start: 20170708
  18. PHOXILIUM [Suspect]
     Active Substance: CALCIUM CL\MAGNESIUM CL\POTASSIUM CL\SODIUM BICAR\SODIUM CL\SODIUM PHOSPHATE,DIB
     Indication: HAEMOFILTRATION
     Route: 065
     Dates: start: 20170715

REACTIONS (14)
  - Ventricular fibrillation [Fatal]
  - Renal failure [Fatal]
  - Malaise [Fatal]
  - General physical health deterioration [Fatal]
  - Cardio-respiratory arrest [Fatal]
  - Respiratory failure [Fatal]
  - Cerebral haematoma [Fatal]
  - Cardiovascular insufficiency [Fatal]
  - Blood phosphorus increased [Fatal]
  - Tumour lysis syndrome [Fatal]
  - Nervous system disorder [Fatal]
  - Cerebrovascular accident [Fatal]
  - Incorrect dose administered [Fatal]
  - Hyperkalaemia [Fatal]

NARRATIVE: CASE EVENT DATE: 20170715
